FAERS Safety Report 5903561-6 (Version None)
Quarter: 2008Q3

REPORT INFORMATION
  Report Type: 
  Country: None (occurrence: None)
  Receive Date: 20080919
  Receipt Date: 20080611
  Transmission Date: 20090109
  Serious: No
  Sender: FDA-Public Use
  Company Number: US-WYE-H04515908

PATIENT
  Age: 23 Year
  Sex: Male
  Weight: 90.8 kg

DRUGS (5)
  1. PRISTIQ [Suspect]
     Indication: DEPRESSION
     Dosage: 50 MG 1X PER 1 DAY, ORAL
     Route: 048
     Dates: start: 20080522
  2. VICODIN [Concomitant]
  3. ROZEREM [Concomitant]
  4. XANAX [Concomitant]
  5. DETROL [Concomitant]

REACTIONS (5)
  - ANOREXIA [None]
  - CHANGE OF BOWEL HABIT [None]
  - LIBIDO DISORDER [None]
  - URINARY HESITATION [None]
  - URINE OUTPUT DECREASED [None]
